FAERS Safety Report 7540542-3 (Version None)
Quarter: 2011Q2

REPORT INFORMATION
  Report Type: 
  Country: None (occurrence: None)
  Receive Date: 20110610
  Receipt Date: 20110531
  Transmission Date: 20111010
  Serious: Yes (Other)
  Sender: FDA-Public Use
  Company Number: B0711739A

PATIENT
  Sex: Female
  Weight: 45 kg

DRUGS (6)
  1. ZOLPIDEM [Concomitant]
     Route: 048
     Dates: start: 20070803
  2. MAGNESIUM OXIDE [Concomitant]
     Dosage: 1.5G PER DAY
     Route: 048
     Dates: start: 20070803
  3. GASPORT [Concomitant]
     Dosage: 20MG PER DAY
     Route: 048
     Dates: start: 20070803, end: 20071016
  4. ALKERAN [Suspect]
     Indication: STEM CELL TRANSPLANT
     Dosage: 100MGM2 PER DAY
     Route: 042
     Dates: start: 20070803, end: 20070804
  5. RAMELTEON [Concomitant]
     Dosage: .3MG PER DAY
     Route: 042
     Dates: start: 20070803, end: 20070805
  6. SIGMART [Concomitant]
     Dosage: 10MG PER DAY
     Route: 048
     Dates: start: 20070803

REACTIONS (1)
  - BLOOD PRESSURE DECREASED [None]
